FAERS Safety Report 9001708 (Version 2)
Quarter: 2013Q2

REPORT INFORMATION
  Report Type: Spontaneous
  Country: US (occurrence: US)
  Receive Date: 20130107
  Receipt Date: 20130404
  Transmission Date: 20140414
  Serious: No
  Sender: FDA-Public Use
  Company Number: US-ASTELLAS-2012US011775

PATIENT
  Age: 78 Year
  Sex: Female

DRUGS (13)
  1. MYRBETRIQ [Suspect]
     Indication: URINARY INCONTINENCE
     Dosage: 25 MG, UID/QD
     Route: 048
     Dates: start: 20121120, end: 20121124
  2. MYRBETRIQ [Suspect]
     Indication: HYPERTONIC BLADDER
  3. MONTELUKAST [Concomitant]
     Indication: PRODUCT USED FOR UNKNOWN INDICATION
     Dosage: UNK
     Route: 065
  4. CLARITIN                           /00413701/ [Concomitant]
     Indication: PRODUCT USED FOR UNKNOWN INDICATION
     Dosage: UNK
     Route: 065
  5. BABY ASPIRIN [Concomitant]
     Indication: PRODUCT USED FOR UNKNOWN INDICATION
     Dosage: UNK
     Route: 065
  6. EVISTA [Concomitant]
     Indication: PRODUCT USED FOR UNKNOWN INDICATION
     Dosage: UNK
     Route: 065
  7. PREDNISONE [Concomitant]
     Indication: ARTHRITIS
     Dosage: 2.5 MG, UID/QD
     Route: 065
  8. VITAMIN D3 [Concomitant]
     Indication: PRODUCT USED FOR UNKNOWN INDICATION
     Dosage: 2000 MG, BID
     Route: 065
  9. FLAX SEED OIL [Concomitant]
     Indication: PRODUCT USED FOR UNKNOWN INDICATION
     Dosage: 10000 MG, UID/QD
     Route: 065
  10. GLUCOSAMINE + CHONDROITIN          /01430901/ [Concomitant]
     Indication: PRODUCT USED FOR UNKNOWN INDICATION
     Dosage: UNK
     Route: 065
  11. ALVESCO [Concomitant]
     Indication: PRODUCT USED FOR UNKNOWN INDICATION
     Dosage: 160 MG, 1 PUFF BID
     Route: 045
  12. ALBUTEROL                          /00139501/ [Concomitant]
     Indication: PRODUCT USED FOR UNKNOWN INDICATION
     Dosage: UNK
     Route: 045
  13. TYLENOL /00020001/ [Concomitant]
     Indication: PAIN
     Dosage: UNK
     Route: 065

REACTIONS (4)
  - Mood altered [Unknown]
  - Irritability [Unknown]
  - Local swelling [Recovering/Resolving]
  - Joint swelling [Recovering/Resolving]
